FAERS Safety Report 15037324 (Version 4)
Quarter: 2018Q4

REPORT INFORMATION
  Report Type: Report from Study
  Country: JP (occurrence: JP)
  Receive Date: 20180620
  Receipt Date: 20181009
  Transmission Date: 20190204
  Serious: Yes (Life-Threatening, Hospitalization, Other)
  Sender: FDA-Public Use
  Company Number: JP-UCBSA-2018026451

PATIENT
  Age: 63 Year
  Sex: Female
  Weight: 60 kg

DRUGS (15)
  1. TAZOPIP [Suspect]
     Active Substance: PIPERACETAZINE\TAZOBACTAM
     Indication: PNEUMONIA
     Dosage: 4.5 G DAILY
     Route: 042
     Dates: start: 20170802, end: 20170808
  2. RHEUMATREX [Concomitant]
     Active Substance: METHOTREXATE SODIUM
     Dosage: 40 MG, EV 5 WEEKS
     Route: 048
     Dates: start: 20160802, end: 20170320
  3. PREDONINE [Suspect]
     Active Substance: PREDNISOLONE
     Dosage: 7.5 MG DAILY
     Route: 048
     Dates: start: 20170330, end: 20170405
  4. AZULFIDINE EN-TABS [Concomitant]
     Active Substance: SULFASALAZINE
     Indication: RHEUMATOID ARTHRITIS
     Dosage: 1000 MG DAILY
     Route: 048
     Dates: start: 20170425
  5. CERTOLIZUMAB PEGOL RA [Suspect]
     Active Substance: CERTOLIZUMAB PEGOL
     Dosage: 400 MG, EV 5 WEEKS
     Route: 058
     Dates: start: 20160907, end: 20170222
  6. PREDONINE [Suspect]
     Active Substance: PREDNISOLONE
     Dosage: 4.5 MG DAILY
     Route: 048
     Dates: start: 20160114, end: 20160509
  7. PREDONINE [Suspect]
     Active Substance: PREDNISOLONE
     Indication: RHEUMATOID ARTHRITIS
     Dosage: 5 MG DAILY
     Route: 048
     Dates: end: 20160113
  8. RHEUMATREX [Concomitant]
     Active Substance: METHOTREXATE SODIUM
     Indication: RHEUMATOID ARTHRITIS
     Dosage: 32 MG, EV 4 WEEKS
     Route: 048
  9. CERTOLIZUMAB PEGOL RA [Suspect]
     Active Substance: CERTOLIZUMAB PEGOL
     Indication: RHEUMATOID ARTHRITIS
     Dosage: 400 MG, EV 2 WEEKS(QOW)
     Route: 058
     Dates: start: 20150319, end: 20150430
  10. PREDONINE [Suspect]
     Active Substance: PREDNISOLONE
     Dosage: 4 MG DAILY
     Route: 048
     Dates: start: 20160510, end: 20170324
  11. PREDONINE [Suspect]
     Active Substance: PREDNISOLONE
     Dosage: 10 MG DAILY
     Route: 048
     Dates: start: 20170325, end: 20170329
  12. CERTOLIZUMAB PEGOL RA [Suspect]
     Active Substance: CERTOLIZUMAB PEGOL
     Dosage: 400 MG, EV 4 WEEKS
     Route: 058
     Dates: start: 20170425, end: 20170718
  13. PREDONINE [Suspect]
     Active Substance: PREDNISOLONE
     Dosage: 5 MG DAILY
     Route: 048
     Dates: start: 20170406
  14. IRON [Concomitant]
     Active Substance: IRON
  15. CERTOLIZUMAB PEGOL RA [Suspect]
     Active Substance: CERTOLIZUMAB PEGOL
     Dosage: 200 MG, EV 2 WEEKS(QOW)
     Route: 058
     Dates: start: 20150521, end: 20160802

REACTIONS (6)
  - Off label use [Unknown]
  - Septic shock [Recovered/Resolved]
  - Microcytic anaemia [Not Recovered/Not Resolved]
  - Purpura [Recovered/Resolved]
  - Bronchiolitis [Recovering/Resolving]
  - Pneumonia [Recovered/Resolved]

NARRATIVE: CASE EVENT DATE: 20160907
